FAERS Safety Report 4331596-6 (Version None)
Quarter: 2004Q2

REPORT INFORMATION
  Report Type: 
  Country: None (occurrence: None)
  Receive Date: 20040402
  Receipt Date: 20030826
  Transmission Date: 20050107
  Serious: Yes (Other)
  Sender: FDA-Public Use
  Company Number: DE-MERCK-0308USA02654

PATIENT
  Age: 14 Week
  Weight: 1 kg

DRUGS (6)
  1. CALCIUM (UNSPECIFIED) [Concomitant]
     Indication: MINERAL SUPPLEMENTATION
     Route: 065
  2. INDOCIN [Suspect]
     Indication: PATENT DUCTUS ARTERIOSUS
     Route: 042
  3. INDOCIN [Suspect]
     Indication: BARTTER'S SYNDROME
     Route: 042
  4. POTASSIUM (UNSPECIFIED) [Concomitant]
     Indication: MINERAL SUPPLEMENTATION
     Route: 065
  5. SODIUM (UNSPECIFIED) [Concomitant]
     Indication: MINERAL SUPPLEMENTATION
     Route: 065
  6. SPIRONOLACTONE [Concomitant]
     Route: 065

REACTIONS (10)
  - ABDOMINAL DISTENSION [None]
  - ARRHYTHMIA [None]
  - BARTTER'S SYNDROME [None]
  - CARDIAC ARREST [None]
  - DRUG INEFFECTIVE [None]
  - DUODENOGASTRIC REFLUX [None]
  - ELECTROLYTE IMBALANCE [None]
  - HYPERALDOSTERONISM [None]
  - LABORATORY TEST ABNORMAL [None]
  - VOMITING [None]
